FAERS Safety Report 11859743 (Version 1)
Quarter: 2015Q4

REPORT INFORMATION
  Report Type: Spontaneous
  Country: US (occurrence: US)
  Receive Date: 20151222
  Receipt Date: 20151222
  Transmission Date: 20160305
  Serious: Yes (Other)
  Sender: FDA-Public Use
  Company Number: US-BEH-2015056767

PATIENT
  Age: 42 Year
  Sex: Male

DRUGS (8)
  1. LOTEPREDNOL [Concomitant]
     Active Substance: LOTEPREDNOL
     Indication: OCULAR PEMPHIGOID
     Route: 047
  2. IVIG [Suspect]
     Active Substance: HUMAN IMMUNOGLOBULIN G
     Indication: OCULAR PEMPHIGOID
     Dosage: IN THE FOURTH WEEK
     Route: 042
  3. PREDNISOLONE. [Concomitant]
     Active Substance: PREDNISOLONE
     Indication: OCULAR PEMPHIGOID
     Route: 047
  4. DOXYCYCLINE. [Concomitant]
     Active Substance: DOXYCYCLINE
     Indication: OCULAR PEMPHIGOID
  5. RITUXIMAB [Concomitant]
     Active Substance: RITUXIMAB
     Dosage: 375/M2 FOR THREE WEEKLY INFUSIONS FOR 2 MONTHS
  6. RITUXIMAB [Concomitant]
     Active Substance: RITUXIMAB
     Indication: OCULAR PEMPHIGOID
     Dosage: MONTHLY INFUSIONS FOR 4 MONTHS
  7. DAPSONE. [Concomitant]
     Active Substance: DAPSONE
     Indication: OCULAR PEMPHIGOID
  8. MYCOPHENELATE MOFETIL [Concomitant]
     Indication: OCULAR PEMPHIGOID

REACTIONS (1)
  - Meningitis aseptic [Recovered/Resolved]
